FAERS Safety Report 13988886 (Version 2)
Quarter: 2017Q4

REPORT INFORMATION
  Report Type: Spontaneous
  Country: US (occurrence: US)
  Receive Date: 20170919
  Receipt Date: 20171121
  Transmission Date: 20180321
  Serious: No
  Sender: FDA-Public Use
  Company Number: US-009507513-1709USA008818

PATIENT
  Age: 68 Year
  Sex: Male

DRUGS (2)
  1. INSULIN GLARGINE BIOSIMILAR [Concomitant]
     Indication: DIABETES MELLITUS
     Dosage: UNK
     Route: 058
  2. SIVEXTRO [Suspect]
     Active Substance: TEDIZOLID PHOSPHATE
     Indication: INFECTION
     Dosage: 200 MG, DAILY
     Route: 048
     Dates: start: 20170824, end: 20170830

REACTIONS (1)
  - Blood glucose increased [Recovered/Resolved]

NARRATIVE: CASE EVENT DATE: 20170825
